FAERS Safety Report 4683858-0 (Version None)
Quarter: 2005Q2

REPORT INFORMATION
  Report Type: 
  Country: None (occurrence: None)
  Receive Date: 20050607
  Receipt Date: 20050324
  Transmission Date: 20051028
  Serious: Yes (Hospitalization)
  Sender: FDA-Public Use
  Company Number: JP-BOEHRINGER INGELHEIM PHARMACEUTICALS, INC.-2005-BP-05839NB

PATIENT
  Sex: Female
  Weight: 61 kg

DRUGS (1)
  1. MICARDIS [Suspect]
     Indication: HYPERTENSION
     Route: 048
     Dates: start: 20041029, end: 20050218

REACTIONS (6)
  - ANAEMIA [None]
  - DYSPNOEA EXERTIONAL [None]
  - NEPHRITIS INTERSTITIAL [None]
  - NEPHROGENIC ANAEMIA [None]
  - RENAL FAILURE ACUTE [None]
  - WEIGHT DECREASED [None]
